FAERS Safety Report 4697850-3 (Version None)
Quarter: 2005Q2

REPORT INFORMATION
  Report Type: 
  Country: None (occurrence: None)
  Receive Date: 20050623
  Receipt Date: 20050610
  Transmission Date: 20051028
  Serious: Yes (Other)
  Sender: FDA-Public Use
  Company Number: PHBS2005DE08799

PATIENT
  Age: 73 Year
  Sex: Male

DRUGS (2)
  1. AREDIA [Suspect]
     Indication: PLASMACYTOMA
     Route: 042
     Dates: start: 19971201
  2. ZOMETA [Suspect]
     Indication: PLASMACYTOMA
     Route: 042
     Dates: start: 20020401

REACTIONS (3)
  - ASEPTIC NECROSIS BONE [None]
  - BONE DEBRIDEMENT [None]
  - TOOTH EXTRACTION [None]
